FAERS Safety Report 9607645 (Version 1)
Quarter: 2013Q4

REPORT INFORMATION
  Report Type: Spontaneous
  Country: US (occurrence: None)
  Receive Date: 20131007
  Receipt Date: 20131007
  Transmission Date: 20140711
  Serious: Yes (Death)
  Sender: FDA-Public Use
  Company Number: 2013AP008618

PATIENT
  Age: 61 Year
  Sex: Male

DRUGS (2)
  1. BUPROPION HYDROCHLORIDE TABLETS [Suspect]
     Route: 048
  2. CHLORDIAZEPOXIDE [Suspect]
     Route: 048

REACTIONS (1)
  - Drug abuse [None]
